FAERS Safety Report 7038547-4 (Version None)
Quarter: 2010Q4

REPORT INFORMATION
  Report Type: 
  Country: None (occurrence: None)
  Receive Date: 20101011
  Receipt Date: 20100730
  Transmission Date: 20110411
  Serious: Yes (Other)
  Sender: FDA-Public Use
  Company Number: US-PFIZER INC-2010081000

PATIENT
  Sex: Female
  Weight: 63.5 kg

DRUGS (7)
  1. NEURONTIN [Suspect]
     Indication: NEUROPATHY PERIPHERAL
     Dosage: UNK, 1X/DAY
     Route: 048
     Dates: start: 20100201, end: 20100101
  2. NEURONTIN [Suspect]
     Dosage: UNK, 2X/DAY
     Route: 048
     Dates: start: 20100101, end: 20100101
  3. NEURONTIN [Suspect]
     Dosage: UNK, 3X/DAY
     Route: 048
     Dates: start: 20100101
  4. LEXAPRO [Concomitant]
     Dosage: UNK
     Route: 048
  5. WARFARIN SODIUM [Concomitant]
     Dosage: UNK
     Route: 048
  6. LASIX [Concomitant]
     Dosage: UNK
     Route: 048
  7. COREG [Concomitant]
     Dosage: UNK
     Route: 048

REACTIONS (5)
  - ASTHENIA [None]
  - DYSARTHRIA [None]
  - FATIGUE [None]
  - NERVOUSNESS [None]
  - RESTLESSNESS [None]
